FAERS Safety Report 8085364-2 (Version None)
Quarter: 2012Q1

REPORT INFORMATION
  Report Type: 
  Country: None (occurrence: None)
  Receive Date: 20120128
  Receipt Date: 20110415
  Transmission Date: 20120608
  Serious: No
  Sender: FDA-Public Use
  Company Number: US-ABBOTT-10P-163-0694465-00

PATIENT
  Age: 46 Year
  Sex: Female

DRUGS (2)
  1. ZYRTEC [Concomitant]
     Indication: SEASONAL ALLERGY
     Route: 048
  2. HUMIRA [Suspect]
     Indication: CROHN'S DISEASE
     Route: 058
     Dates: start: 20080301

REACTIONS (5)
  - CERVICAL POLYP [None]
  - CROHN'S DISEASE [None]
  - TINEA INFECTION [None]
  - ABDOMINAL PAIN [None]
  - DRUG INEFFECTIVE [None]
